FAERS Safety Report 26035731 (Version 1)
Quarter: 2025Q4

REPORT INFORMATION
  Report Type: Spontaneous
  Country: CN (occurrence: CN)
  Receive Date: 20251112
  Receipt Date: 20251112
  Transmission Date: 20260118
  Serious: Yes (Other)
  Sender: ALEXION PHARMACEUTICALS
  Company Number: CN-ASTRAZENECA-202511GLO007711CN

PATIENT
  Age: 45 Year
  Sex: Female

DRUGS (9)
  1. FULVESTRANT [Suspect]
     Active Substance: FULVESTRANT
     Indication: Breast cancer
     Dosage: UNK
     Route: 065
  2. FULVESTRANT [Suspect]
     Active Substance: FULVESTRANT
  3. TAMOXIFEN CITRATE [Suspect]
     Active Substance: TAMOXIFEN CITRATE
     Indication: Breast cancer
     Route: 065
  4. PALBOCICLIB [Suspect]
     Active Substance: PALBOCICLIB
     Indication: Breast cancer
     Dosage: UNK
     Route: 065
  5. EPIRUBICIN [Concomitant]
     Active Substance: EPIRUBICIN
     Indication: Breast cancer
     Dosage: UNK
  6. PACLITAXEL [Concomitant]
     Active Substance: PACLITAXEL
     Indication: Breast cancer
     Dosage: UNK
  7. LEUPROLIDE [Concomitant]
     Active Substance: LEUPROLIDE
     Indication: Breast cancer
     Dosage: UNK
  8. ZOLEDRONIC ACID [Concomitant]
     Active Substance: ZOLEDRONIC ACID
     Indication: Breast cancer
     Dosage: 4 MILLIGRAM, Q4W
     Dates: start: 201604
  9. DENOSUMAB [Concomitant]
     Active Substance: DENOSUMAB
     Indication: Breast cancer
     Dosage: 120 MILLIGRAM, Q4W
     Dates: start: 202104

REACTIONS (2)
  - Malignant neoplasm progression [Unknown]
  - Metastases to liver [Unknown]
